FAERS Safety Report 15905801 (Version 1)
Quarter: 2019Q1

REPORT INFORMATION
  Report Type: Spontaneous
  Country: US (occurrence: US)
  Receive Date: 20190202
  Receipt Date: 20190202
  Transmission Date: 20190417
  Serious: Yes (Other)
  Sender: FDA-Public Use
  Company Number: None

PATIENT
  Age: 33 Year
  Sex: Female
  Weight: 63 kg

DRUGS (13)
  1. HYZENTRA SQ ONCE WEEKLY [Concomitant]
  2. VITAMIN D 1000 IU QD [Concomitant]
  3. NAMENDA 10 MG QD [Concomitant]
  4. BOTOX Q 10-12 WEEKS [Concomitant]
  5. OMEPRAZOLE 20 MG BID [Concomitant]
  6. CYMBALTA 120MG QD [Concomitant]
  7. WELLBUTRIN 450 MG QD [Concomitant]
  8. TOPIRAMATE 25 MG QHS [Concomitant]
  9. SAME 200 MG QD [Concomitant]
  10. TUMS 10-12 PER DAY [Concomitant]
  11. AIMOVIG [Suspect]
     Active Substance: ERENUMAB-AOOE
     Indication: MIGRAINE
     Dosage: ?          OTHER FREQUENCY:ONCE EVERY 4 WEEKS;?
     Route: 058
     Dates: start: 20180821, end: 20181221
  12. SUCRALFATE 1 GR QID [Concomitant]
  13. FAMOTADINE 10 MG BID [Concomitant]

REACTIONS (4)
  - Hypokalaemia [None]
  - Gastritis [None]
  - Ulcer [None]
  - Oesophagitis [None]

NARRATIVE: CASE EVENT DATE: 20190108
